FAERS Safety Report 7821878-5 (Version None)
Quarter: 2011Q4

REPORT INFORMATION
  Report Type: 
  Country: None (occurrence: None)
  Receive Date: 20111018
  Receipt Date: 20110620
  Transmission Date: 20120403
  Serious: No
  Sender: FDA-Public Use
  Company Number: US-ASTRAZENECA-2011SE37408

PATIENT
  Sex: Female

DRUGS (5)
  1. SYMBICORT [Suspect]
     Indication: COUGH
     Dosage: 160/4.5 MCG 2 PUFFS BID
     Route: 055
     Dates: start: 20110501
  2. SYMBICORT [Suspect]
     Dosage: 160/4.5 MCG 2 PUFFS DAILY
     Route: 055
  3. SUDAFED 12 HOUR [Concomitant]
  4. CLARITIN [Concomitant]
  5. TESSALON [Concomitant]

REACTIONS (2)
  - INAPPROPRIATE SCHEDULE OF DRUG ADMINISTRATION [None]
  - ANOSMIA [None]
